FAERS Safety Report 10208933 (Version 3)
Quarter: 2014Q2

REPORT INFORMATION
  Report Type: Spontaneous
  Country: IT (occurrence: IT)
  Receive Date: 20140530
  Receipt Date: 20140604
  Transmission Date: 20141212
  Serious: Yes (Hospitalization)
  Sender: FDA-Public Use
  Company Number: IT-PFIZER INC-2014145756

PATIENT
  Age: 44 Year
  Sex: Male

DRUGS (1)
  1. ALPRAZOLAM [Suspect]
     Indication: ANXIETY
     Dosage: 15 MG, DAILY (ELASTOMER WITH LOW-DOSE S.C)
     Route: 048
     Dates: start: 20111128, end: 20120528

REACTIONS (1)
  - Drug dependence [Recovering/Resolving]
